FAERS Safety Report 13335789 (Version 4)
Quarter: 2017Q2

REPORT INFORMATION
  Report Type: Spontaneous
  Country: US (occurrence: US)
  Receive Date: 20170314
  Receipt Date: 20170525
  Transmission Date: 20170830
  Serious: Yes (Other)
  Sender: FDA-Public Use
  Company Number: US-TAIHO ONCOLOGY INC-EU-2017-00447

PATIENT
  Sex: Female

DRUGS (3)
  1. LONSURF [Suspect]
     Active Substance: TIPIRACIL HYDROCHLORIDE\TRIFLURIDINE
     Indication: RECTAL CANCER
     Dosage: CYCLE 3 STARTED ON AN UNKNOWN DATE
     Route: 048
     Dates: start: 20170106, end: 2017
  2. CYANOCOBALAMIN. [Concomitant]
     Active Substance: CYANOCOBALAMIN
     Dosage: NI
  3. PRADAXA [Concomitant]
     Active Substance: DABIGATRAN ETEXILATE MESYLATE
     Dosage: NI

REACTIONS (7)
  - Irritability [Unknown]
  - Fatigue [Unknown]
  - Anger [Unknown]
  - Vomiting [Recovered/Resolved]
  - White blood cell count decreased [Unknown]
  - Nausea [Unknown]
  - Disease progression [Unknown]

NARRATIVE: CASE EVENT DATE: 2017
